FAERS Safety Report 9226766 (Version 1)
Quarter: 2013Q2

REPORT INFORMATION
  Report Type: Spontaneous
  Country: US (occurrence: US)
  Receive Date: 20130412
  Receipt Date: 20130412
  Transmission Date: 20140414
  Serious: No
  Sender: FDA-Public Use
  Company Number: US-009507513-1304USA004170

PATIENT
  Sex: Male

DRUGS (1)
  1. VYTORIN [Suspect]
     Dosage: UNK
     Route: 048

REACTIONS (3)
  - Tablet physical issue [Unknown]
  - Drug dose omission [Unknown]
  - No adverse event [Unknown]
